FAERS Safety Report 9016948 (Version 2)
Quarter: 2014Q3

REPORT INFORMATION
  Report Type: Report from Study
  Country: MX (occurrence: MX)
  Receive Date: 20130117
  Receipt Date: 20140729
  Transmission Date: 20150326
  Serious: Yes (Death, Other)
  Sender: FDA-Public Use
  Company Number: PHHY2013MX004083

PATIENT
  Age: 75 Year
  Sex: Female

DRUGS (2)
  1. BI EUGLUCON [Concomitant]
     Indication: DIABETES MELLITUS
     Dosage: 1 DF, DAILY
  2. DIOVAN [Suspect]
     Active Substance: VALSARTAN
     Indication: HYPERTENSION
     Dosage: 1 DF, DAILY
     Route: 048
     Dates: start: 20090205

REACTIONS (2)
  - Death [Fatal]
  - Gallbladder neoplasm [Not Recovered/Not Resolved]
